FAERS Safety Report 6108016-4 (Version None)
Quarter: 2009Q1

REPORT INFORMATION
  Report Type: 
  Country: None (occurrence: None)
  Receive Date: 20090309
  Receipt Date: 20090227
  Transmission Date: 20090719
  Serious: Yes (Hospitalization)
  Sender: FDA-Public Use
  Company Number: JP-AVENTIS-200910571JP

PATIENT
  Age: 43 Year
  Sex: Female

DRUGS (2)
  1. LANTUS [Suspect]
     Dosage: DOSE: 12 UNITS
     Route: 058
  2. RAPID-ACTING INSULIN [Concomitant]
     Route: 058

REACTIONS (4)
  - AMNESIA [None]
  - COMA [None]
  - GLYCOSYLATED HAEMOGLOBIN INCREASED [None]
  - HYPOGLYCAEMIC ENCEPHALOPATHY [None]
